FAERS Safety Report 24405319 (Version 8)
Quarter: 2025Q4

REPORT INFORMATION
  Report Type: Report from Study
  Country: US (occurrence: US)
  Receive Date: 20241007
  Receipt Date: 20251013
  Transmission Date: 20260118
  Serious: Yes (Other)
  Sender: ABBVIE
  Company Number: US-ABBVIE-5874748

PATIENT
  Age: 62 Year
  Sex: Female

DRUGS (2)
  1. SKYRIZI [Suspect]
     Active Substance: RISANKIZUMAB-RZAA
     Indication: Crohn^s disease
     Route: 058
     Dates: start: 20240206
  2. SKYRIZI [Suspect]
     Active Substance: RISANKIZUMAB-RZAA
     Indication: Crohn^s disease
     Route: 042
     Dates: start: 20231204, end: 20231204

REACTIONS (9)
  - Gastrointestinal scarring [Recovering/Resolving]
  - Asthenia [Recovering/Resolving]
  - Post procedural complication [Recovering/Resolving]
  - Abdominal distension [Recovering/Resolving]
  - Diarrhoea infectious [Not Recovered/Not Resolved]
  - Depressed mood [Recovering/Resolving]
  - Stress [Recovering/Resolving]
  - Crohn^s disease [Recovering/Resolving]
  - Therapeutic response shortened [Unknown]

NARRATIVE: CASE EVENT DATE: 20240801
